FAERS Safety Report 15191498 (Version 1)
Quarter: 2018Q3

REPORT INFORMATION
  Report Type: Report from Study
  Country: US (occurrence: US)
  Receive Date: 20180724
  Receipt Date: 20180724
  Transmission Date: 20181010
  Serious: Yes (Other)
  Sender: FDA-Public Use
  Company Number: US-AMGEN-USASL2018070536

PATIENT
  Age: 62 Year
  Sex: Female
  Weight: 63.95 kg

DRUGS (5)
  1. KYPROLIS [Suspect]
     Active Substance: CARFILZOMIB
     Indication: PLASMA CELL MYELOMA
     Dosage: 44.3 MG, 2 TIMES/WK
     Route: 042
     Dates: start: 20180214
  2. HYDROCHLOROTHIAZIDE. [Concomitant]
     Active Substance: HYDROCHLOROTHIAZIDE
     Indication: OEDEMA
     Dosage: 12.5 MG, QD
  3. LISINOPRIL. [Concomitant]
     Active Substance: LISINOPRIL
     Indication: HYPERTENSION
     Dosage: 40 MG, QD
  4. AMLODIPINE [Concomitant]
     Active Substance: AMLODIPINE BESYLATE
     Indication: HYPERTENSION
     Dosage: 5 MG, QD
  5. METOPROLOL. [Concomitant]
     Active Substance: METOPROLOL
     Indication: HYPERTENSION
     Dosage: 50 MG, BID

REACTIONS (18)
  - Aspartate aminotransferase increased [Unknown]
  - Blood albumin decreased [Unknown]
  - Haematocrit increased [Unknown]
  - Blood urea increased [Unknown]
  - Oedema [Not Recovered/Not Resolved]
  - Lymphocyte count increased [Unknown]
  - Albumin globulin ratio decreased [Unknown]
  - Globulins increased [Unknown]
  - Blood creatinine increased [Unknown]
  - Anaemia [Recovered/Resolved]
  - Protein total increased [Unknown]
  - Blood pressure abnormal [Unknown]
  - Neutrophil count decreased [Unknown]
  - Thrombocytopenia [Not Recovered/Not Resolved]
  - White blood cell count decreased [Unknown]
  - Feeling abnormal [Unknown]
  - Blood glucose increased [Unknown]
  - Haemoglobin increased [Unknown]

NARRATIVE: CASE EVENT DATE: 2018
